FAERS Safety Report 6037455-5 (Version None)
Quarter: 2009Q1

REPORT INFORMATION
  Report Type: 
  Country: None (occurrence: None)
  Receive Date: 20090114
  Receipt Date: 20081128
  Transmission Date: 20090719
  Serious: Yes (Hospitalization, Other)
  Sender: FDA-Public Use
  Company Number: JP-PFIZER INC-2008070786

PATIENT

DRUGS (6)
  1. SULPERAZON [Suspect]
     Indication: FEBRILE NEUTROPENIA
     Dosage: 1 G, 2X/DAY
     Route: 042
     Dates: start: 20080809, end: 20080812
  2. CRAVIT [Concomitant]
     Route: 048
     Dates: start: 20080806, end: 20080809
  3. ACINON [Concomitant]
     Route: 048
     Dates: start: 20080527, end: 20080817
  4. NEUTROGIN [Concomitant]
     Route: 058
     Dates: start: 20080809, end: 20080812
  5. LOXONIN [Concomitant]
     Indication: PYREXIA
     Route: 048
     Dates: start: 20080809, end: 20080812
  6. VOLTAREN [Concomitant]
     Indication: PYREXIA
     Route: 054
     Dates: start: 20080809, end: 20080812

REACTIONS (1)
  - PNEUMONITIS [None]
